FAERS Safety Report 14600273 (Version 1)
Quarter: 2018Q1

REPORT INFORMATION
  Report Type: Spontaneous
  Country: JP (occurrence: JP)
  Receive Date: 20180305
  Receipt Date: 20180305
  Transmission Date: 20180509
  Serious: Yes (Death)
  Sender: FDA-Public Use
  Company Number: JP-PFIZER INC-2018083753

PATIENT
  Age: 64 Year
  Sex: Female
  Weight: 47 kg

DRUGS (7)
  1. FENTANYL CITRATE. [Suspect]
     Active Substance: FENTANYL CITRATE
     Indication: SEPSIS
     Dosage: UNK
     Route: 042
     Dates: start: 20180219, end: 20180221
  2. PRECEDEX [Suspect]
     Active Substance: DEXMEDETOMIDINE HYDROCHLORIDE
     Indication: CIRCULATORY COLLAPSE
     Dosage: UNK
     Route: 042
     Dates: start: 20180219, end: 20180220
  3. NORADRENALINE [Suspect]
     Active Substance: NOREPINEPHRINE
     Indication: BLOOD PRESSURE MANAGEMENT
     Dosage: UNK
     Route: 042
     Dates: start: 20180219
  4. BOSMIN [Suspect]
     Active Substance: EPINEPHRINE
     Indication: BLOOD PRESSURE MANAGEMENT
     Dosage: UNK
     Route: 042
     Dates: start: 20180219, end: 20180221
  5. ONOACT [Suspect]
     Active Substance: LANDIOLOL HYDROCHLORIDE
     Indication: TACHYARRHYTHMIA
     Dosage: UNK
     Route: 042
     Dates: start: 20180219, end: 20180220
  6. HYDROCORTONE [Suspect]
     Active Substance: HYDROCORTISONE
     Indication: CIRCULATORY COLLAPSE
     Dosage: UNK
     Route: 042
     Dates: start: 20180219
  7. INTERFERON BETA NOS [Suspect]
     Active Substance: INTERFERON BETA
     Indication: ACUTE RESPIRATORY DISTRESS SYNDROME
     Dosage: 10 UG, DAILY
     Route: 042
     Dates: start: 20180219

REACTIONS (1)
  - Multiple organ dysfunction syndrome [Fatal]

NARRATIVE: CASE EVENT DATE: 20180220
